FAERS Safety Report 5168957-1 (Version None)
Quarter: 2006Q4

REPORT INFORMATION
  Report Type: 
  Country: None (occurrence: None)
  Receive Date: 20061211
  Receipt Date: 20061120
  Transmission Date: 20070319
  Serious: Yes (Other)
  Sender: FDA-Public Use
  Company Number: NL-GLAXOSMITHKLINE-B0447848A

PATIENT
  Age: 42 Year
  Sex: Female

DRUGS (4)
  1. PAROXETINE HCL [Suspect]
     Indication: DEPRESSION
     Dosage: 20MG UNKNOWN
     Dates: start: 20040209, end: 20061114
  2. YASMIN [Concomitant]
     Dates: start: 20040121
  3. CETIRIZINE HCL [Concomitant]
     Dosage: 10MG PER DAY
     Dates: start: 20050401
  4. AXID [Concomitant]
     Dosage: 300MG PER DAY
     Dates: start: 20031001

REACTIONS (2)
  - MALIGNANT HYPERTENSION [None]
  - RETINOPATHY [None]
